FAERS Safety Report 9291503 (Version 5)
Quarter: 2014Q3

REPORT INFORMATION
  Report Type: Spontaneous
  Country: US (occurrence: US)
  Receive Date: 20130515
  Receipt Date: 20140825
  Transmission Date: 20150326
  Serious: No
  Sender: FDA-Public Use
  Company Number: US-009507513-1305USA008616

PATIENT
  Sex: Male
  Weight: 106.8 kg

DRUGS (1)
  1. PROPECIA [Suspect]
     Active Substance: FINASTERIDE
     Indication: ALOPECIA
     Dosage: 1 MG, QD
     Route: 048
     Dates: start: 200706, end: 20110309

REACTIONS (18)
  - Injury [Unknown]
  - Hypoaesthesia [Unknown]
  - Insomnia [Not Recovered/Not Resolved]
  - Arthralgia [Unknown]
  - Chest pain [Unknown]
  - Depression [Not Recovered/Not Resolved]
  - Erectile dysfunction [Not Recovered/Not Resolved]
  - Generalised anxiety disorder [Not Recovered/Not Resolved]
  - Semen volume decreased [Unknown]
  - Libido disorder [Unknown]
  - Cardiovascular disorder [Unknown]
  - Sexual dysfunction [Not Recovered/Not Resolved]
  - Essential hypertension [Unknown]
  - Penis injury [Unknown]
  - Brain injury [Unknown]
  - Mobility decreased [Unknown]
  - Joint crepitation [Unknown]
  - Joint hyperextension [Unknown]

NARRATIVE: CASE EVENT DATE: 2008
